FAERS Safety Report 5769329-9 (Version None)
Quarter: 2008Q2

REPORT INFORMATION
  Report Type: 
  Country: None (occurrence: None)
  Receive Date: 20080610
  Receipt Date: 20080528
  Transmission Date: 20081010
  Serious: Yes (Hospitalization)
  Sender: FDA-Public Use
  Company Number: 14207906

PATIENT
  Sex: Female

DRUGS (10)
  1. EMSAM [Suspect]
     Dosage: 1 DAY TD
     Dates: start: 20070801
  2. LITHIUM CARBONATE [Suspect]
  3. MOBIC [Suspect]
  4. COZAAR [Concomitant]
  5. AMLODIPINE [Concomitant]
  6. SYNTHROID [Concomitant]
  7. ZOFRAN [Concomitant]
  8. VITAMIN E [Concomitant]
  9. NEURONTIN [Concomitant]
  10. TYLENOL [Concomitant]

REACTIONS (8)
  - APPLICATION SITE RASH [None]
  - GASTRITIS [None]
  - GLOSSODYNIA [None]
  - NAUSEA [None]
  - OESOPHAGITIS [None]
  - ORAL INTAKE REDUCED [None]
  - RENAL DISORDER [None]
  - SUICIDAL IDEATION [None]
